FAERS Safety Report 4459411-0 (Version None)
Quarter: 2004Q3

REPORT INFORMATION
  Report Type: 
  Country: None (occurrence: None)
  Receive Date: 20040927
  Receipt Date: 20040923
  Transmission Date: 20050211
  Serious: Yes (Hospitalization)
  Sender: FDA-Public Use
  Company Number: US-GLAXOSMITHKLINE-A0527101A

PATIENT
  Age: 13 Month
  Sex: Female

DRUGS (13)
  1. FORTAZ [Suspect]
     Indication: PNEUMONIA
     Dosage: 350MG THREE TIMES PER DAY
     Route: 042
     Dates: start: 20040907
  2. BUDESONIDE (INHALER) [Concomitant]
  3. BENADRYL [Concomitant]
  4. PULMOZYME [Concomitant]
  5. IBUPROFEN [Concomitant]
  6. BACTROBAN [Concomitant]
  7. NUTRAMIGEN [Concomitant]
  8. NYSTATIN OINTMENT [Concomitant]
  9. CREON 5 [Concomitant]
  10. VANCOMYCIN [Concomitant]
  11. VITAMAX [Concomitant]
  12. UNKNOWN MEDICATION [Concomitant]
  13. TOBRAMYCIN [Concomitant]

REACTIONS (4)
  - ALANINE AMINOTRANSFERASE INCREASED [None]
  - ASPARTATE AMINOTRANSFERASE INCREASED [None]
  - GAMMA-GLUTAMYLTRANSFERASE INCREASED [None]
  - HEPATIC ENZYME INCREASED [None]
